FAERS Safety Report 4603009-8 (Version None)
Quarter: 2005Q1

REPORT INFORMATION
  Report Type: 
  Country: None (occurrence: None)
  Receive Date: 20050307
  Receipt Date: 20050218
  Transmission Date: 20050727
  Serious: Yes (Death, Hospitalization)
  Sender: FDA-Public Use
  Company Number: 20050227990

PATIENT
  Age: 75 Year
  Sex: Male
  Weight: 91 kg

DRUGS (5)
  1. DOXORUBICIN HCL [Suspect]
     Indication: ILL-DEFINED DISORDER
     Dosage: 1000 MG, INTRAVENOUS
     Route: 042
     Dates: start: 20040825
  2. CYCLOPHOSPHAMIDE [Suspect]
     Indication: ILL-DEFINED DISORDER
     Dosage: 1000 MG, INTRAVENOUS
     Route: 042
     Dates: start: 20040825
  3. RITUXIMAB (RITUXIMAB) [Suspect]
     Indication: ILL-DEFINED DISORDER
     Dosage: (750 MG), INTRAVENOUS
     Route: 042
     Dates: start: 20040825
  4. VINCRISTINE [Suspect]
     Indication: ILL-DEFINED DISORDER
     Dosage: (1 MG), INTRAVENOUS
     Route: 042
     Dates: start: 20040825
  5. PREDNISONE [Concomitant]

REACTIONS (5)
  - ANAEMIA [None]
  - BLOOD ALBUMIN INCREASED [None]
  - CREPITATIONS [None]
  - NEUTROPENIC SEPSIS [None]
  - OEDEMA [None]
